FAERS Safety Report 16790054 (Version 1)
Quarter: 2019Q3

REPORT INFORMATION
  Report Type: Spontaneous
  Country: DE (occurrence: DE)
  Receive Date: 20190910
  Receipt Date: 20190910
  Transmission Date: 20191005
  Serious: Yes (Congenital Anomaly)
  Sender: FDA-Public Use
  Company Number: DE-TORRENT-00001977

PATIENT
  Sex: Male
  Weight: 3 kg

DRUGS (6)
  1. CETIRIZIN [Suspect]
     Active Substance: CETIRIZINE HYDROCHLORIDE
     Indication: SEASONAL ALLERGY
     Dosage: DAILY DOSE:10 MG
     Route: 064
     Dates: start: 20110308, end: 20110428
  2. TD-IMPFSTOFF MERIEUX [Concomitant]
     Indication: IMMUNISATION
     Dosage: UNKNOWN
     Route: 064
     Dates: start: 20110421, end: 20110421
  3. FEMIBION [Concomitant]
     Indication: PROPHYLAXIS OF NEURAL TUBE DEFECT
     Dosage: 0.4 MG/D
  4. OTRIVEN [Suspect]
     Active Substance: XYLOMETAZOLINE HYDROCHLORIDE
     Indication: RHINITIS ALLERGIC
     Dosage: UNKNOWN
     Route: 064
     Dates: start: 20110308, end: 20111214
  5. INSULIN [Concomitant]
     Active Substance: INSULIN NOS
     Indication: DIABETES MELLITUS
     Dosage: UNKNOWN
     Route: 064
     Dates: start: 20111016
  6. AMOXCLAV [Concomitant]
     Active Substance: AMOXICILLIN\CLAVULANIC ACID
     Indication: ABSCESS
     Dosage: 375 MG/D (3X125) / 1500 MG/D (3X500)
     Route: 064
     Dates: start: 20110420, end: 20110427

REACTIONS (2)
  - Maternal exposure during pregnancy [Unknown]
  - Anal atresia [Recovered/Resolved with Sequelae]

NARRATIVE: CASE EVENT DATE: 20110308
